FAERS Safety Report 21662810 (Version 1)
Quarter: 2022Q4

REPORT INFORMATION
  Report Type: Spontaneous
  Country: US (occurrence: US)
  Receive Date: 20221130
  Receipt Date: 20221130
  Transmission Date: 20230112
  Serious: No
  Sender: FDA-Public Use
  Company Number: US-009507513-2211USA005690

PATIENT
  Sex: Male

DRUGS (3)
  1. TEMODAR [Suspect]
     Active Substance: TEMOZOLOMIDE
     Indication: Glioma
     Dosage: 150 MILLIGRAM/SQ. METER ORALLY DAILY DURING DAYS 1 - 5 EVERY 28 DAYS
     Route: 048
  2. IRINOTECAN [Suspect]
     Active Substance: IRINOTECAN
     Indication: Glioma
     Dosage: 125 MILLIGRAM/SQ. METER EVERY 14 DAYS IN A 28-32 DAYS PERIOD
  3. BEVACIZUMAB [Suspect]
     Active Substance: BEVACIZUMAB
     Indication: Glioma
     Dosage: 10 MILLIGRAM/KILOGRAM EVERY 14 DAYS IN 28-32 DAYS PERIOD

REACTIONS (1)
  - Product use in unapproved indication [Unknown]
